FAERS Safety Report 24850566 (Version 1)
Quarter: 2025Q1

REPORT INFORMATION
  Report Type: Spontaneous
  Country: GB (occurrence: GB)
  Receive Date: 20250116
  Receipt Date: 20250116
  Transmission Date: 20250409
  Serious: Yes (Life-Threatening, Other)
  Sender: PFIZER
  Company Number: GB-PFIZER INC-PV202500004489

PATIENT
  Age: 15 Year
  Sex: Female

DRUGS (5)
  1. METHYLPREDNISOLONE SODIUM SUCCINATE [Suspect]
     Active Substance: METHYLPREDNISOLONE SODIUM SUCCINATE
     Indication: Marburg^s variant multiple sclerosis
     Dosage: 1 G, DAILY
     Route: 042
  2. GABAPENTIN [Suspect]
     Active Substance: GABAPENTIN
     Indication: Marburg^s variant multiple sclerosis
     Dosage: 300 MG, 1X/DAY AT BEDTIME
  3. GABAPENTIN [Suspect]
     Active Substance: GABAPENTIN
     Dosage: 300 MG, 3X/DAY, MAINTENANCE DOSE AT BEDTIME
  4. CLONAZEPAM [Suspect]
     Active Substance: CLONAZEPAM
     Indication: Marburg^s variant multiple sclerosis
     Dosage: 0.5 MG, 1X/DAY AT BEDTIME
  5. CLONAZEPAM [Suspect]
     Active Substance: CLONAZEPAM
     Dosage: 1 MG, 1X/DAY, AT BEDTIME MAINTENANCE DOSE

REACTIONS (1)
  - Drug ineffective [Unknown]
